FAERS Safety Report 5323725-2 (Version None)
Quarter: 2007Q2

REPORT INFORMATION
  Report Type: 
  Country: None (occurrence: None)
  Receive Date: 20070514
  Receipt Date: 20070507
  Transmission Date: 20071010
  Serious: Yes (Death)
  Sender: FDA-Public Use
  Company Number: JP-AVENTIS-200710987JP

PATIENT
  Age: 73 Year
  Sex: Female
  Weight: 59.9 kg

DRUGS (13)
  1. TAXOTERE [Suspect]
     Route: 041
     Dates: start: 20070221, end: 20070221
  2. RADIOTHERAPY [Concomitant]
     Dosage: DOSE: 60 GY/TOTAL
     Dates: start: 20061117, end: 20070104
  3. RADIOTHERAPY [Concomitant]
     Dosage: DOSE: 30 GY/TOTAL
     Dates: start: 20070228, end: 20070313
  4. RADIOTHERAPY [Concomitant]
     Dosage: DOSE: 60 GY/TOTAL
     Dates: start: 20061117, end: 20070104
  5. RADIOTHERAPY [Concomitant]
     Dosage: DOSE: 30 GY/TOTAL
     Dates: start: 20070228, end: 20070313
  6. KYTRIL                             /01178101/ [Concomitant]
     Indication: PREMEDICATION
     Route: 041
     Dates: start: 20070221, end: 20070221
  7. DECADRON [Concomitant]
     Indication: PREMEDICATION
     Dates: start: 20070221, end: 20070221
  8. CYTOTEC [Concomitant]
     Route: 048
     Dates: start: 20061109, end: 20070331
  9. MAGMITT [Concomitant]
     Route: 048
     Dates: start: 20061118, end: 20070331
  10. VOLTAREN [Concomitant]
     Route: 054
     Dates: start: 20061121, end: 20070331
  11. GASTER D [Concomitant]
     Route: 048
     Dates: start: 20070305, end: 20070331
  12. OPIUM ALKALOIDS AND DERIVATIVES [Concomitant]
     Route: 048
     Dates: start: 20070320, end: 20070331
  13. LAC B [Concomitant]
     Route: 048
     Dates: start: 20070320

REACTIONS (1)
  - RADIATION PNEUMONITIS [None]
